FAERS Safety Report 22260654 (Version 2)
Quarter: 2024Q4

REPORT INFORMATION
  Report Type: Report from Study
  Country: US (occurrence: US)
  Receive Date: 20230427
  Receipt Date: 20241011
  Transmission Date: 20250114
  Serious: Yes (Other)
  Sender: ROCHE
  Company Number: US-ROCHE-3338506

PATIENT
  Age: 74 Year
  Sex: Male

DRUGS (3)
  1. ESBRIET [Suspect]
     Active Substance: PIRFENIDONE
     Indication: Interstitial lung disease
     Dosage: TAKE 1 TABLET BY MOUTH 3 TIMES A DAY WITH MEALS FOR 7 DAYS. THEN, TAKE 2 TABLET(S) BY MOUTH 3 TIMES
     Route: 048
  2. RITUXAN [Suspect]
     Active Substance: RITUXIMAB
     Indication: Interstitial lung disease
     Dosage: INFUSE 1000MG INTRAVENOUSLY ON DAY 1 AND DAY 15 EVERY 6 MONTH(S)
     Route: 042
     Dates: start: 20220217
  3. RITUXAN [Suspect]
     Active Substance: RITUXIMAB
     Dosage: 1000 MG X 2 A WEEK APART
     Route: 065

REACTIONS (7)
  - Fatigue [Unknown]
  - Lung neoplasm malignant [Unknown]
  - Cardiac disorder [Unknown]
  - Dyspnoea [Unknown]
  - Off label use [Unknown]
  - Cough [Unknown]
  - Memory impairment [Unknown]
